FAERS Safety Report 23211711 (Version 1)
Quarter: 2023Q4

REPORT INFORMATION
  Report Type: Spontaneous
  Country: US (occurrence: US)
  Receive Date: 20231121
  Receipt Date: 20231121
  Transmission Date: 20240110
  Serious: Yes (Other)
  Sender: FDA-Public Use
  Company Number: US-ENDO-CASE-0042960

PATIENT

DRUGS (6)
  1. OPANA ER [Suspect]
     Active Substance: OXYMORPHONE HYDROCHLORIDE
  2. PERCOCET [Suspect]
     Active Substance: ACETAMINOPHEN\OXYCODONE HYDROCHLORIDE
  3. OXYCODONE [Suspect]
     Active Substance: OXYCODONE
  4. STADOL [Suspect]
     Active Substance: BUTORPHANOL TARTRATE
  5. OXYCONTIN [Suspect]
     Active Substance: OXYCODONE HYDROCHLORIDE
  6. OPANA [Suspect]
     Active Substance: OXYMORPHONE HYDROCHLORIDE

REACTIONS (1)
  - Dependence [Unknown]
